FAERS Safety Report 5485284-3 (Version None)
Quarter: 2007Q4

REPORT INFORMATION
  Report Type: 
  Country: None (occurrence: None)
  Receive Date: 20071015
  Receipt Date: 20071003
  Transmission Date: 20080405
  Serious: Yes (Other)
  Sender: FDA-Public Use
  Company Number: US-AMGEN-US213331

PATIENT
  Sex: Male

DRUGS (9)
  1. ARANESP [Suspect]
     Indication: RENAL FAILURE CHRONIC
     Dates: start: 20051101, end: 20061101
  2. PROCRIT [Suspect]
     Indication: RENAL FAILURE CHRONIC
     Route: 058
     Dates: start: 20061114, end: 20070109
  3. LASIX [Concomitant]
  4. LUPRON [Concomitant]
  5. SINEMET [Concomitant]
  6. ALDACTONE [Concomitant]
  7. PROTONIX [Concomitant]
  8. ASPIRIN [Concomitant]
  9. EFFEXOR [Concomitant]

REACTIONS (1)
  - APLASIA PURE RED CELL [None]
